FAERS Safety Report 24719217 (Version 2)
Quarter: 2025Q3

REPORT INFORMATION
  Report Type: Report from Study
  Country: CA (occurrence: CA)
  Receive Date: 20241210
  Receipt Date: 20250810
  Transmission Date: 20251021
  Serious: Yes (Hospitalization)
  Sender: ALEXION PHARMACEUTICALS
  Company Number: CA-AstraZeneca-CH-00717426A

PATIENT
  Sex: Female

DRUGS (4)
  1. BENRALIZUMAB [Suspect]
     Active Substance: BENRALIZUMAB
     Indication: Asthma
  2. VENTOLIN [Concomitant]
     Active Substance: ALBUTEROL SULFATE
  3. TRELEGY ELLIPTA [Concomitant]
     Active Substance: FLUTICASONE FUROATE\UMECLIDINIUM BROMIDE\VILANTEROL TRIFENATATE
  4. ARNUITY ELLIPTA [Concomitant]
     Active Substance: FLUTICASONE FUROATE

REACTIONS (3)
  - Haematological infection [Unknown]
  - Ammonia abnormal [Unknown]
  - Malaise [Unknown]
